FAERS Safety Report 4588156-1 (Version None)
Quarter: 2005Q1

REPORT INFORMATION
  Report Type: 
  Country: None (occurrence: None)
  Receive Date: 20050221
  Receipt Date: 20041206
  Transmission Date: 20050727
  Serious: Yes (Other)
  Sender: FDA-Public Use
  Company Number: PHEH2004US12975

PATIENT
  Age: 55 Year
  Sex: Male

DRUGS (3)
  1. ANTIVIRALS FOR SYSTEMIC USE [Concomitant]
  2. GLEEVEC [Suspect]
     Indication: CHRONIC MYELOID LEUKAEMIA
     Dosage: 400 MG, QD
     Route: 048
  3. GLEEVEC [Suspect]
     Dosage: 800 MG, QD

REACTIONS (2)
  - THROMBOCYTHAEMIA [None]
  - WHITE BLOOD CELL COUNT DECREASED [None]
